FAERS Safety Report 5605550-8 (Version None)
Quarter: 2008Q1

REPORT INFORMATION
  Report Type: 
  Country: None (occurrence: None)
  Receive Date: 20080123
  Receipt Date: 20080121
  Transmission Date: 20080703
  Serious: Yes (Other)
  Sender: FDA-Public Use
  Company Number: 2008SP000170

PATIENT
  Age: 50 Year
  Sex: Male

DRUGS (5)
  1. PEG-INTRON [Suspect]
     Indication: CHRONIC MYELOID LEUKAEMIA
     Dosage: 50 MCG;QW;SC
     Route: 058
     Dates: start: 20060915, end: 20070316
  2. GLEEVEC [Concomitant]
  3. ZANIDIP [Concomitant]
  4. FURIX [Concomitant]
  5. SELO-ZOK [Concomitant]

REACTIONS (1)
  - ASTHMA [None]
